FAERS Safety Report 6941463-7 (Version None)
Quarter: 2010Q3

REPORT INFORMATION
  Report Type: 
  Country: None (occurrence: None)
  Receive Date: 20100825
  Receipt Date: 20100817
  Transmission Date: 20110219
  Serious: Yes (Other)
  Sender: FDA-Public Use
  Company Number: US-AMGEN-KDC425922

PATIENT
  Sex: Male

DRUGS (2)
  1. DENOSUMAB [Suspect]
     Indication: BONE GIANT CELL TUMOUR
     Dates: start: 20080911, end: 20100524
  2. OSCAL [Concomitant]
     Route: 048
     Dates: start: 20080911

REACTIONS (1)
  - OSTEONECROSIS OF JAW [None]
